FAERS Safety Report 19810411 (Version 3)
Quarter: 2022Q2

REPORT INFORMATION
  Report Type: Report from Study
  Country: CA (occurrence: None)
  Receive Date: 20210909
  Receipt Date: 20220531
  Transmission Date: 20220721
  Serious: Yes (Hospitalization, Other)
  Sender: FDA-Public Use
  Company Number: CA-AMGEN-CANSL2020206727

PATIENT
  Age: 57 Year
  Sex: Female

DRUGS (6)
  1. METHOTREXATE [Suspect]
     Active Substance: METHOTREXATE
     Indication: Product used for unknown indication
     Dosage: UNK (MULTIPLE-USE VIAL)
     Route: 065
  2. METHOTREXATE [Suspect]
     Active Substance: METHOTREXATE
     Route: 065
  3. ENBREL [Suspect]
     Active Substance: ETANERCEPT
     Indication: Rheumatoid arthritis
     Dosage: 2 TIMES/WEEK
     Route: 065
     Dates: start: 20050526, end: 2018
  4. ENBREL [Suspect]
     Active Substance: ETANERCEPT
     Dosage: 2 TIMES/WEEK
     Route: 065
     Dates: start: 2018, end: 2019
  5. ENBREL [Suspect]
     Active Substance: ETANERCEPT
     Route: 065
     Dates: start: 2019, end: 2020
  6. ENBREL [Suspect]
     Active Substance: ETANERCEPT
     Route: 065
     Dates: start: 2020

REACTIONS (18)
  - Helicobacter gastritis [Not Recovered/Not Resolved]
  - Intestinal obstruction [Unknown]
  - Appendix disorder [Not Recovered/Not Resolved]
  - Intestinal perforation [Not Recovered/Not Resolved]
  - Volvulus [Not Recovered/Not Resolved]
  - Perforated ulcer [Not Recovered/Not Resolved]
  - Diverticulitis [Not Recovered/Not Resolved]
  - Weight decreased [Not Recovered/Not Resolved]
  - Foot deformity [Not Recovered/Not Resolved]
  - Malaise [Not Recovered/Not Resolved]
  - Musculoskeletal stiffness [Not Recovered/Not Resolved]
  - Procedural complication [Not Recovered/Not Resolved]
  - Joint swelling [Not Recovered/Not Resolved]
  - Pain [Not Recovered/Not Resolved]
  - Arthralgia [Not Recovered/Not Resolved]
  - Emotional distress [Unknown]
  - Gait inability [Unknown]
  - Nausea [Unknown]

NARRATIVE: CASE EVENT DATE: 20180101
